FAERS Safety Report 5123318-6 (Version None)
Quarter: 2006Q4

REPORT INFORMATION
  Report Type: 
  Country: None (occurrence: None)
  Receive Date: 20061009
  Receipt Date: 20060803
  Transmission Date: 20070319
  Serious: Yes (Other)
  Sender: FDA-Public Use
  Company Number: US-BRISTOL-MYERS SQUIBB COMPANY-13466313

PATIENT
  Age: 78 Year
  Sex: Male

DRUGS (2)
  1. KENALOG-40 [Suspect]
     Indication: MACULAR OEDEMA
     Route: 031
     Dates: start: 20060622, end: 20060622
  2. ZYMAR [Concomitant]

REACTIONS (1)
  - VISION BLURRED [None]
